FAERS Safety Report 10257479 (Version 1)
Quarter: 2014Q2

REPORT INFORMATION
  Report Type: Spontaneous
  Country: GB (occurrence: None)
  Receive Date: 20140620
  Receipt Date: 20140620
  Transmission Date: 20141212
  Serious: Yes (Hospitalization)
  Sender: FDA-Public Use
  Company Number: SYM-2014-22009

PATIENT
  Age: 71 Year
  Sex: Female

DRUGS (4)
  1. FLUOROURACIL [Suspect]
     Indication: PANCREATIC CARCINOMA METASTATIC
  2. OXALIPLATIN [Suspect]
     Indication: PANCREATIC CARCINOMA METASTATIC
  3. OXALIPLATIN [Suspect]
     Indication: PANCREATIC CARCINOMA METASTATIC
  4. IRINOTECAN [Suspect]
     Indication: PANCREATIC CARCINOMA METASTATIC

REACTIONS (16)
  - Neutropenic sepsis [None]
  - Diarrhoea [None]
  - Alopecia [None]
  - Nausea [None]
  - Vomiting [None]
  - Leukopenia [None]
  - Thrombocytopenia [None]
  - Mucosal inflammation [None]
  - Melaena [None]
  - Gastrointestinal ulcer [None]
  - Dehydration [None]
  - Tachycardia [None]
  - Aphagia [None]
  - Chest pain [None]
  - Orthostatic hypotension [None]
  - Hypophagia [None]
